FAERS Safety Report 8881297 (Version 11)
Quarter: 2014Q2

REPORT INFORMATION
  Report Type: Spontaneous
  Country: CA (occurrence: CA)
  Receive Date: 20121031
  Receipt Date: 20140417
  Transmission Date: 20141212
  Serious: Yes (Other)
  Sender: FDA-Public Use
  Company Number: CA-GLAXOSMITHKLINE-A0997198A

PATIENT
  Age: 46 Year
  Sex: Female
  Weight: 58 kg

DRUGS (6)
  1. BENLYSTA [Suspect]
     Indication: SYSTEMIC LUPUS ERYTHEMATOSUS
     Dosage: 600MG SEE DOSAGE TEXT
     Route: 042
     Dates: start: 20121005
  2. CHANTIX [Suspect]
     Indication: EX-TOBACCO USER
     Route: 065
     Dates: end: 20140324
  3. PLAQUENIL [Concomitant]
     Dosage: 200MG PER DAY
  4. PREDNISONE [Concomitant]
  5. TYLENOL [Concomitant]
     Route: 048
  6. REACTINE (CETIRIZINE HYDROCHLORIDE) [Concomitant]
     Route: 048

REACTIONS (12)
  - Systemic lupus erythematosus [Unknown]
  - Somnolence [Recovered/Resolved]
  - Asthenia [Not Recovered/Not Resolved]
  - Fatigue [Unknown]
  - Malaise [Unknown]
  - Drug ineffective [Unknown]
  - Dental operation [Unknown]
  - Osteomyelitis [Recovered/Resolved]
  - Fatigue [Unknown]
  - Exfoliative rash [Recovering/Resolving]
  - Insomnia [Recovering/Resolving]
  - Alopecia [Recovering/Resolving]
